FAERS Safety Report 16107984 (Version 28)
Quarter: 2022Q2

REPORT INFORMATION
  Report Type: Report from Study
  Country: DO (occurrence: DO)
  Receive Date: 20190322
  Receipt Date: 20220518
  Transmission Date: 20220721
  Serious: Yes (Hospitalization, Other)
  Sender: FDA-Public Use
  Company Number: PHHY2019DO028728

PATIENT
  Age: 72 Year
  Sex: Female

DRUGS (6)
  1. GILENYA [Suspect]
     Active Substance: FINGOLIMOD HYDROCHLORIDE
     Indication: Relapsing-remitting multiple sclerosis
     Dosage: 0.5 MG, QD (VIA MOUTH)
     Route: 048
     Dates: start: 20190130
  2. GILENYA [Suspect]
     Active Substance: FINGOLIMOD HYDROCHLORIDE
     Dosage: 0.5 MG, QD (VIA MOUTH)
     Route: 048
     Dates: start: 20210130
  3. GILENYA [Suspect]
     Active Substance: FINGOLIMOD HYDROCHLORIDE
     Dosage: 0.5 MG, QD
     Route: 048
     Dates: start: 20220202
  4. GILENYA [Suspect]
     Active Substance: FINGOLIMOD HYDROCHLORIDE
     Dosage: 0.5 MG, QD
     Route: 048
     Dates: start: 20220203
  5. TRILEPTAL [Suspect]
     Active Substance: OXCARBAZEPINE
     Indication: Thyroid disorder
     Dosage: UNK
     Route: 065
  6. EUROGASTRO [Concomitant]
     Indication: Product used for unknown indication
     Dosage: UNK
     Route: 065

REACTIONS (60)
  - Ill-defined disorder [Recovered/Resolved]
  - Bronchial disorder [Unknown]
  - Malaise [Not Recovered/Not Resolved]
  - Breast injury [Unknown]
  - Pneumonia [Unknown]
  - Helicobacter infection [Recovered/Resolved]
  - Helicobacter infection [Not Recovered/Not Resolved]
  - Multiple sclerosis [Unknown]
  - Hypertension [Recovering/Resolving]
  - Central nervous system lesion [Unknown]
  - Somnolence [Not Recovered/Not Resolved]
  - Blood pressure fluctuation [Unknown]
  - Decreased appetite [Unknown]
  - Fear [Unknown]
  - Abdominal discomfort [Not Recovered/Not Resolved]
  - Fall [Recovered/Resolved]
  - Depressed mood [Recovered/Resolved]
  - Depression [Recovered/Resolved]
  - Thyroid disorder [Recovered/Resolved]
  - Hyperhidrosis [Recovering/Resolving]
  - Blood pressure decreased [Recovering/Resolving]
  - Gait disturbance [Unknown]
  - Abdominal pain upper [Not Recovered/Not Resolved]
  - Tension [Unknown]
  - Patient elopement [Recovering/Resolving]
  - Limb injury [Unknown]
  - Breast pain [Recovered/Resolved]
  - SARS-CoV-2 test positive [Unknown]
  - Memory impairment [Unknown]
  - Fatigue [Recovered/Resolved]
  - Fatigue [Recovering/Resolving]
  - Nausea [Unknown]
  - Dizziness [Recovered/Resolved]
  - Varicella zoster virus infection [Unknown]
  - Eye disorder [Not Recovered/Not Resolved]
  - Tremor [Unknown]
  - Nerve injury [Unknown]
  - Dermatitis [Unknown]
  - Pruritus [Recovered/Resolved]
  - Polyp [Unknown]
  - Constipation [Unknown]
  - Asthenia [Unknown]
  - Herpes zoster [Recovered/Resolved with Sequelae]
  - Skin lesion [Unknown]
  - Back pain [Unknown]
  - Influenza [Unknown]
  - Depression [Unknown]
  - Pain in extremity [Unknown]
  - Malaise [Unknown]
  - Discomfort [Not Recovered/Not Resolved]
  - Pain [Not Recovered/Not Resolved]
  - Weight increased [Unknown]
  - Drug intolerance [Unknown]
  - Anxiety [Unknown]
  - Ocular discomfort [Unknown]
  - Urinary incontinence [Unknown]
  - Dizziness [Unknown]
  - Weight decreased [Unknown]
  - Product use in unapproved indication [Unknown]
  - Drug ineffective [Unknown]

NARRATIVE: CASE EVENT DATE: 20200129
